FAERS Safety Report 6970242-X (Version None)
Quarter: 2010Q3

REPORT INFORMATION
  Report Type: 
  Country: None (occurrence: None)
  Receive Date: 20100908
  Receipt Date: 20100825
  Transmission Date: 20110219
  Serious: Yes (Other)
  Sender: FDA-Public Use
  Company Number: PHHY2010US56413

PATIENT
  Sex: Female

DRUGS (6)
  1. DIOVAN HCT [Suspect]
     Indication: HYPERTENSION
     Dosage: UNK
     Route: 048
     Dates: start: 20050101
  2. COREG [Concomitant]
     Dosage: UNK
  3. ACCUPRIL [Concomitant]
     Dosage: UNK
  4. TEKTURNA [Concomitant]
     Dosage: UNK
  5. KAPIDEX [Concomitant]
     Dosage: UNK
  6. LEVAQUIN [Concomitant]
     Indication: URINARY TRACT INFECTION
     Dosage: UNK

REACTIONS (3)
  - CHEST DISCOMFORT [None]
  - GALLBLADDER OPERATION [None]
  - INTESTINAL OPERATION [None]
